FAERS Safety Report 8233867-X (Version None)
Quarter: 2012Q1

REPORT INFORMATION
  Report Type: 
  Country: None (occurrence: None)
  Receive Date: 20120326
  Receipt Date: 20120314
  Transmission Date: 20120608
  Serious: Yes (Hospitalization, Other)
  Sender: FDA-Public Use
  Company Number: US-ELI_LILLY_AND_COMPANY-US201111004232

PATIENT
  Sex: Female

DRUGS (22)
  1. FORTEO [Suspect]
     Dosage: 20 UG, QD
     Route: 065
  2. ENABLEX                            /01760401/ [Concomitant]
     Dosage: 15 MG, UNK
  3. VITAMIN E [Concomitant]
  4. GLUCOSAMINE [Concomitant]
  5. FORTEO [Suspect]
     Dosage: 20 UG, QD
     Route: 065
  6. LYRICA [Concomitant]
     Dosage: 75 MG, TID
  7. MULTI-VITAMIN [Concomitant]
  8. CODEINE PHOSPHATE [Concomitant]
     Indication: PAIN
     Dosage: 3 DF, PRN
  9. MOBIC [Concomitant]
     Dosage: 15 MG, UNK
  10. NEUROTIN                           /00949202/ [Concomitant]
     Dosage: 300 MG, EACH EVENING
  11. FISH [Concomitant]
  12. BORAGE OIL [Concomitant]
     Dosage: UNK, QD
  13. FORTEO [Suspect]
     Dosage: 20 UG, QD
  14. LIPITOR [Concomitant]
     Dosage: 10 MG, UNK
  15. GABAPENTIN [Concomitant]
  16. LEVOTHYROXINE SODIUM [Concomitant]
     Dosage: 0.25 MG, UNK
  17. VITAMIN D [Concomitant]
  18. FLAXSEED OIL [Concomitant]
  19. FORTEO [Suspect]
     Indication: OSTEOPOROSIS
     Dosage: 20 UG, QD
     Route: 065
     Dates: start: 20101119
  20. NEURONTIN [Concomitant]
     Dosage: 300 MG, EACH EVENING
  21. SYNTHROID [Concomitant]
     Dosage: 25 UG, QD
  22. CALCIUM CARBONATE [Concomitant]

REACTIONS (6)
  - PAIN [None]
  - KNEE ARTHROPLASTY [None]
  - HEARING IMPAIRED [None]
  - ARTHROPATHY [None]
  - BLOOD COUNT ABNORMAL [None]
  - GAIT DISTURBANCE [None]
